FAERS Safety Report 23376782 (Version 1)
Quarter: 2024Q1

REPORT INFORMATION
  Report Type: Report from Study
  Country: US (occurrence: US)
  Receive Date: 20240108
  Receipt Date: 20240108
  Transmission Date: 20240409
  Serious: No
  Sender: FDA-Public Use
  Company Number: US-BIOVITRUM-2023-US-021433

PATIENT
  Age: 12 Month
  Sex: Female

DRUGS (2)
  1. SYNAGIS [Suspect]
     Active Substance: PALIVIZUMAB
     Indication: Dependence on oxygen therapy
     Dosage: MONTHLY
     Route: 030
     Dates: start: 202310, end: 20231019
  2. SYNAGIS [Suspect]
     Active Substance: PALIVIZUMAB
     Indication: Lung disorder

REACTIONS (2)
  - Illness [Unknown]
  - Pyrexia [Unknown]
